FAERS Safety Report 23696066 (Version 1)
Quarter: 2024Q2

REPORT INFORMATION
  Report Type: Report from Study
  Country: JP (occurrence: JP)
  Receive Date: 20240402
  Receipt Date: 20240402
  Transmission Date: 20240716
  Serious: Yes (Other)
  Sender: FDA-Public Use
  Company Number: JP-002147023-NVSJ2022JP093527

PATIENT
  Age: 8 Year
  Sex: Male
  Weight: 28.5 kg

DRUGS (3)
  1. KYMRIAH [Suspect]
     Active Substance: TISAGENLECLEUCEL
     Indication: Acute lymphocytic leukaemia recurrent
     Dosage: FULL DOSE ADMINISTERED (9.36X10^7 CELL)
     Route: 041
     Dates: start: 20210906, end: 20210906
  2. FLUDARABINE PHOSPHATE [Concomitant]
     Active Substance: FLUDARABINE PHOSPHATE
     Indication: Lymphodepletion
     Dosage: 120 MG/M2, TOTAL DOSE OF DRUG (FLUDARABINE + ENDOXAN): 120 MG/M2
     Route: 065
     Dates: start: 20210831
  3. CYCLOPHOSPHAMIDE [Concomitant]
     Active Substance: CYCLOPHOSPHAMIDE
     Indication: Lymphodepletion
     Dosage: UNK, TOTAL DOSE OF DRUG (FLUDARABINE + ENDOXAN): 120 MG/M2
     Route: 065
     Dates: start: 20210831

REACTIONS (9)
  - Cytokine release syndrome [Recovered/Resolved]
  - Pyrexia [Unknown]
  - Hypogammaglobulinaemia [Not Recovered/Not Resolved]
  - Acute lymphocytic leukaemia recurrent [Unknown]
  - Disease recurrence [Unknown]
  - Lymphocyte count decreased [Unknown]
  - Neutrophil count decreased [Unknown]
  - White blood cell count decreased [Unknown]
  - COVID-19 [Unknown]

NARRATIVE: CASE EVENT DATE: 20210913
